FAERS Safety Report 18107157 (Version 1)
Quarter: 2020Q3

REPORT INFORMATION
  Report Type: Spontaneous
  Country: US (occurrence: US)
  Receive Date: 20200803
  Receipt Date: 20200803
  Transmission Date: 20201103
  Serious: No
  Sender: FDA-Public Use
  Company Number: None

PATIENT
  Age: 34 Year
  Sex: Female
  Weight: 111.15 kg

DRUGS (5)
  1. VITAMIN D [Concomitant]
     Active Substance: VITAMIN D NOS
  2. LYSINE [Concomitant]
     Active Substance: LYSINE
  3. MAGNESIUM [Concomitant]
     Active Substance: MAGNESIUM
  4. ARMOUR THYROID [Concomitant]
     Active Substance: THYROID, PORCINE
  5. MIRENA [Suspect]
     Active Substance: LEVONORGESTREL
     Indication: CONTRACEPTION

REACTIONS (8)
  - Headache [None]
  - Fatigue [None]
  - Lethargy [None]
  - Weight increased [None]
  - Pain [None]
  - Arthralgia [None]
  - Depression [None]
  - Mood altered [None]
